FAERS Safety Report 9410491 (Version 1)
Quarter: 2013Q3

REPORT INFORMATION
  Report Type: Report from Study
  Country: US (occurrence: US)
  Receive Date: 20130719
  Receipt Date: 20130719
  Transmission Date: 20140515
  Serious: Yes (Hospitalization)
  Sender: FDA-Public Use
  Company Number: US-VERTEX PHARMACEUTICALS INC-AE-2012-006030

PATIENT
  Age: 58 Year
  Sex: Female

DRUGS (3)
  1. VX-950 (TELAPREVIR) [Suspect]
     Indication: HEPATITIS C
     Dosage: UNK
     Route: 048
     Dates: start: 20120302, end: 20120415
  2. PEGASYS [Suspect]
     Indication: HEPATITIS C
     Dosage: 180 ?G, UNK
     Route: 058
     Dates: start: 20120302, end: 20120701
  3. RIBAVIRIN [Suspect]
     Indication: HEPATITIS C
     Dosage: 600 MG, UNK
     Dates: start: 20120302, end: 20120810

REACTIONS (12)
  - Rash erythematous [Recovered/Resolved]
  - Cellulitis [Recovered/Resolved]
  - Blood glucose increased [Unknown]
  - Hypertension [Unknown]
  - Heart rate increased [Unknown]
  - Stomatitis [Unknown]
  - Insomnia [Unknown]
  - Feeling hot [Unknown]
  - Skin ulcer [Unknown]
  - Vision blurred [Recovered/Resolved]
  - Hepatitis C [Not Recovered/Not Resolved]
  - Pruritus [Unknown]
